FAERS Safety Report 8008662-7 (Version None)
Quarter: 2011Q4

REPORT INFORMATION
  Report Type: 
  Country: None (occurrence: None)
  Receive Date: 20111227
  Receipt Date: 20111215
  Transmission Date: 20120403
  Serious: Yes (Hospitalization, Other)
  Sender: FDA-Public Use
  Company Number: US-MERCK-1109USA00518

PATIENT
  Age: 70 Year
  Sex: Female
  Weight: 56 kg

DRUGS (7)
  1. FOSAMAX [Suspect]
     Indication: OSTEOPENIA
     Route: 048
     Dates: start: 20020601
  2. ALENDRONATE SODIUM [Concomitant]
     Indication: OSTEOPOROSIS
     Route: 048
     Dates: start: 20081201
  3. FOSAMAX [Suspect]
     Indication: OSTEOPOROSIS
     Route: 048
     Dates: start: 20020601
  4. LISINOPRIL [Concomitant]
     Route: 065
  5. COREG [Concomitant]
     Route: 065
  6. ALENDRONATE SODIUM [Concomitant]
     Indication: OSTEOPENIA
     Route: 048
     Dates: start: 20081201
  7. VYTORIN [Concomitant]
     Route: 048

REACTIONS (35)
  - COMPRESSION FRACTURE [None]
  - SPINAL OSTEOARTHRITIS [None]
  - GOITRE [None]
  - THROMBOSIS [None]
  - CONTUSION [None]
  - AORTIC THROMBOSIS [None]
  - ARTHROPATHY [None]
  - AORTIC ARTERIOSCLEROSIS [None]
  - CERVICAL VERTEBRAL FRACTURE [None]
  - GASTROOESOPHAGEAL REFLUX DISEASE [None]
  - INTERVERTEBRAL DISC DEGENERATION [None]
  - INTERMITTENT CLAUDICATION [None]
  - ROAD TRAFFIC ACCIDENT [None]
  - LUMBAR RADICULOPATHY [None]
  - FEMUR FRACTURE [None]
  - CORONARY ARTERY DISEASE [None]
  - GASTROENTERITIS VIRAL [None]
  - AORTIC ANEURYSM [None]
  - DEPRESSION [None]
  - MITRAL VALVE PROLAPSE [None]
  - INTERVERTEBRAL DISC PROTRUSION [None]
  - LEFT VENTRICULAR DYSFUNCTION [None]
  - SPONDYLOLISTHESIS [None]
  - CARDIOMYOPATHY [None]
  - THYROID DISORDER [None]
  - VENTRICULAR TACHYCARDIA [None]
  - HAEMORRHAGIC ANAEMIA [None]
  - BRONCHITIS [None]
  - BURSITIS [None]
  - SCIATICA [None]
  - PULMONARY HYPERTENSION [None]
  - FACET JOINT SYNDROME [None]
  - BREAST CANCER [None]
  - FALL [None]
  - BACK PAIN [None]
